FAERS Safety Report 15162760 (Version 2)
Quarter: 2018Q3

REPORT INFORMATION
  Report Type: Spontaneous
  Country: IN (occurrence: IN)
  Receive Date: 20180718
  Receipt Date: 20180820
  Transmission Date: 20181010
  Serious: Yes (Hospitalization, Other)
  Sender: FDA-Public Use
  Company Number: IN-BAUSCH-BL-2018-019519

PATIENT
  Age: 18 Year
  Sex: Male

DRUGS (6)
  1. FLUOROURACIL. [Suspect]
     Active Substance: FLUOROURACIL
     Indication: RECTOSIGMOID CANCER METASTATIC
     Dosage: TEN CYCLES OF FOLFIRI CHEMOTHERAPY GIVEN EVERY 2 WEEKS, FOLLOWING WHICH TREATMENT WAS ABSTAINED
     Route: 065
  2. FOLINIC ACID [Suspect]
     Active Substance: LEUCOVORIN
     Indication: ADENOCARCINOMA
     Dosage: QCY
     Route: 065
  3. FOLINIC ACID [Suspect]
     Active Substance: LEUCOVORIN
     Indication: RECTOSIGMOID CANCER METASTATIC
     Dosage: TEN CYCLES OF FOLFIRI CHEMOTHERAPY GIVEN EVERY 2 WEEKS, FOLLOWING WHICH TREATMENT WAS ABSTAINED
     Route: 065
  4. FLUOROURACIL. [Suspect]
     Active Substance: FLUOROURACIL
     Indication: ADENOCARCINOMA
     Dosage: QCY
     Route: 065
  5. IRINOTECAN [Suspect]
     Active Substance: IRINOTECAN
     Indication: RECTOSIGMOID CANCER METASTATIC
     Dosage: TEN CYCLES OF FOLFIRI CHEMOTHERAPY GIVEN EVERY 2 WEEKS, FOLLOWING WHICH TREATMENT WAS ABSTAINED
     Route: 065
  6. IRINOTECAN [Suspect]
     Active Substance: IRINOTECAN
     Indication: ADENOCARCINOMA
     Dosage: QCY
     Route: 065

REACTIONS (4)
  - Loss of consciousness [Unknown]
  - Posterior reversible encephalopathy syndrome [Recovered/Resolved]
  - Blood pressure increased [Recovered/Resolved]
  - Seizure [Unknown]
